FAERS Safety Report 12690026 (Version 1)
Quarter: 2016Q3

REPORT INFORMATION
  Report Type: Spontaneous
  Country: BR (occurrence: BR)
  Receive Date: 20160826
  Receipt Date: 20160826
  Transmission Date: 20161109
  Serious: Yes (Death, Hospitalization)
  Sender: FDA-Public Use
  Company Number: BR-BAYER-2016-159176

PATIENT
  Sex: Male

DRUGS (1)
  1. NEXAVAR [Suspect]
     Active Substance: SORAFENIB
     Indication: HEPATIC CANCER
     Dosage: 400 MG, BID
     Route: 048
     Dates: start: 20160804, end: 20160810

REACTIONS (8)
  - Renal failure [Fatal]
  - Hepatic cirrhosis [Fatal]
  - Respiratory failure [Fatal]
  - Pneumonia [Fatal]
  - Dyspnoea [None]
  - Constipation [None]
  - Malaise [None]
  - Hepatic failure [None]

NARRATIVE: CASE EVENT DATE: 20160808
